FAERS Safety Report 8559239-6 (Version None)
Quarter: 2012Q3

REPORT INFORMATION
  Report Type: 
  Country: None (occurrence: None)
  Receive Date: 20120720
  Receipt Date: 20120711
  Transmission Date: 20120928
  Serious: Yes (Death, Other)
  Sender: FDA-Public Use
  Company Number: AUR-APL-2012-03007

PATIENT
  Age: 79 Year
  Sex: Female
  Weight: 55.45 kg

DRUGS (27)
  1. BUMETANIDE [Suspect]
     Indication: PRODUCT USED FOR UNKNOWN INDICATION
  2. ADENOSINE [Concomitant]
  3. AUGMENTIN '125' [Concomitant]
  4. FOLIC ACID [Concomitant]
  5. FUROSEMIDE [Concomitant]
  6. HEPARIN [Concomitant]
  7. OMEPRAZOLE [Concomitant]
  8. WARFARIN SODIUM [Concomitant]
  9. CANDESARTAN CILEXETIL [Concomitant]
  10. TEICOPLANIN (TEICOPLANIN) [Concomitant]
  11. AMIODARONE HYDROCHLORIDE [Concomitant]
  12. CLOTRIMAZOLE [Concomitant]
  13. DIORALYTE (DIORALYTE) [Concomitant]
  14. TRAMADOL HCL [Concomitant]
  15. SIMVASTATIN [Suspect]
     Indication: PRODUCT USED FOR UNKNOWN INDICATION
  16. ACETAMINOPHEN W/ CODEINE [Concomitant]
  17. CLARITHROMYCIN [Suspect]
     Indication: PNEUMONIA
     Dosage: 1000 MG (500 MG, 2 IN 1 D), ORAL
     Route: 048
     Dates: start: 20120512, end: 20120521
  18. SPIRONOLACTONE [Suspect]
     Indication: PRODUCT USED FOR UNKNOWN INDICATION
  19. ADCAL-D3 (LEKOVIT CA) [Concomitant]
  20. BISOPROLOL FUMARATE [Concomitant]
  21. DALTEPARIN SODIUM [Concomitant]
  22. METHOTREXATE SODIUM [Concomitant]
  23. METOCLOPRAMIDE [Concomitant]
  24. DICLOFENAC DIETHYLAMMONIUM SALT (DICLOFENAC DIETHYLAMINE) [Concomitant]
  25. FORTISIP (FORTISIP) [Concomitant]
  26. GENTAMICIN [Concomitant]
  27. ACETAMINOPHEN [Concomitant]

REACTIONS (15)
  - RASH MACULO-PAPULAR [None]
  - SKIN EXFOLIATION [None]
  - TOXIC EPIDERMAL NECROLYSIS [None]
  - PRURITUS [None]
  - RASH [None]
  - SWELLING [None]
  - PULMONARY FIBROSIS [None]
  - FLUID OVERLOAD [None]
  - MONOPLEGIA [None]
  - PULMONARY EMBOLISM [None]
  - OEDEMA PERIPHERAL [None]
  - ERYTHEMA [None]
  - BLISTER [None]
  - DRUG HYPERSENSITIVITY [None]
  - ATRIAL FIBRILLATION [None]
